FAERS Safety Report 7830109-1 (Version None)
Quarter: 2011Q4

REPORT INFORMATION
  Report Type: 
  Country: None (occurrence: None)
  Receive Date: 20111021
  Receipt Date: 20111011
  Transmission Date: 20120403
  Serious: Yes (Other)
  Sender: FDA-Public Use
  Company Number: FR-JNJFOC-20111005354

PATIENT
  Sex: Male
  Weight: 110 kg

DRUGS (3)
  1. DARUNAVIR ETHANOLATE [Suspect]
     Indication: HIV INFECTION
     Route: 048
     Dates: start: 20101121, end: 20110923
  2. TRUVADA [Concomitant]
     Indication: HIV INFECTION
     Dosage: 800/200
     Dates: start: 20101121
  3. NORVIR [Suspect]
     Indication: HIV INFECTION
     Route: 065
     Dates: start: 20101121, end: 20110923

REACTIONS (1)
  - LIPODYSTROPHY ACQUIRED [None]
